FAERS Safety Report 4893464-0 (Version None)
Quarter: 2006Q1

REPORT INFORMATION
  Report Type: 
  Country: None (occurrence: None)
  Receive Date: 20060127
  Receipt Date: 20050712
  Transmission Date: 20060701
  Serious: Yes (Other)
  Sender: FDA-Public Use
  Company Number: PHHO2005DE11077

PATIENT
  Age: 18 Year
  Sex: Female
  Weight: 51 kg

DRUGS (10)
  1. SIMULECT [Suspect]
     Indication: RENAL TRANSPLANT
     Dosage: 20 MG, (DAY 0)
     Route: 042
     Dates: start: 20050107, end: 20050107
  2. SIMULECT [Suspect]
     Dosage: 20 MG, (DAY 4)
     Route: 042
     Dates: start: 20050111, end: 20050111
  3. CELLCEPT [Suspect]
     Indication: RENAL TRANSPLANT
     Dosage: 500 MG, BID
     Route: 048
     Dates: start: 20050627
  4. SANDIMMUNE [Suspect]
     Indication: RENAL TRANSPLANT
     Dosage: 160 MG, BID
     Route: 048
     Dates: start: 20050714
  5. PREDNISOLONE [Concomitant]
     Indication: RENAL TRANSPLANT
     Dosage: 6 MG / DAY
     Route: 048
  6. CORINFAR [Concomitant]
  7. CARDULAR [Concomitant]
  8. METOPROLOL SUCCINATE [Concomitant]
  9. FOLIC ACID [Concomitant]
  10. EBRANTIL [Concomitant]

REACTIONS (1)
  - AGRANULOCYTOSIS [None]
